FAERS Safety Report 11610551 (Version 5)
Quarter: 2015Q4

REPORT INFORMATION
  Report Type: Spontaneous
  Country: US (occurrence: None)
  Receive Date: 20151006
  Receipt Date: 20151123
  Transmission Date: 20160304
  Serious: Yes (Other)
  Sender: FDA-Public Use
  Company Number: 2015054395

PATIENT
  Age: 9 Year
  Sex: Male
  Weight: 27.9 kg

DRUGS (1)
  1. STIMATE [Suspect]
     Active Substance: DESMOPRESSIN ACETATE
     Indication: VON WILLEBRAND^S DISEASE
     Dosage: (1 PUFF TO 1 NOSE NASAL)
     Route: 045
     Dates: start: 20150928, end: 20150928

REACTIONS (8)
  - Anaphylactic reaction [None]
  - Loss of consciousness [None]
  - Dizziness [None]
  - Hypotension [None]
  - Hyperhidrosis [None]
  - Skin discolouration [None]
  - Drug hypersensitivity [None]
  - Syncope [None]

NARRATIVE: CASE EVENT DATE: 20150928
